FAERS Safety Report 5613141-8 (Version None)
Quarter: 2008Q1

REPORT INFORMATION
  Report Type: 
  Country: None (occurrence: None)
  Receive Date: 20080129
  Receipt Date: 20080116
  Transmission Date: 20080703
  Serious: Yes (Hospitalization)
  Sender: FDA-Public Use
  Company Number: 230177J07USA

PATIENT
  Sex: Female
  Weight: 1.2859 kg

DRUGS (4)
  1. REBIF [Suspect]
     Indication: MULTIPLE SCLEROSIS
     Dosage: I.U.
     Route: 015
  2. GONAL-F [Suspect]
     Indication: INFERTILITY FEMALE
     Dosage: TRANSPLACENTAL
     Route: 064
     Dates: start: 20070401, end: 20070401
  3. LETROZOLE [Suspect]
     Indication: INFERTILITY
     Dosage: TRANSPLACENTAL
     Route: 064
     Dates: start: 20070401, end: 20070401
  4. PRENATAL VITAMINS (PRENATAL VITAMINS) [Suspect]
     Dosage: TRANSPLACENTAL
     Route: 064

REACTIONS (4)
  - CAESAREAN SECTION [None]
  - DRUG EXPOSURE DURING PREGNANCY [None]
  - MULTIPLE PREGNANCY [None]
  - PREMATURE BABY [None]
